FAERS Safety Report 6313478-3 (Version None)
Quarter: 2009Q3

REPORT INFORMATION
  Report Type: 
  Country: None (occurrence: None)
  Receive Date: 20090814
  Receipt Date: 20090814
  Transmission Date: 20100115
  Serious: Yes (Life-Threatening)
  Sender: FDA-Public Use
  Company Number: None

PATIENT
  Age: 41 Year
  Sex: Female
  Weight: 110.2241 kg

DRUGS (1)
  1. LYRICA [Suspect]
     Indication: MIGRAINE
     Dosage: 75MG FOR ONE WEEK ONCE DAILY PO 150MG AFTER FIRST WEEK 75 AM 75 PM PO
     Route: 048
     Dates: start: 20080401, end: 20090201

REACTIONS (16)
  - AMNESIA [None]
  - BLOOD GLUCOSE FLUCTUATION [None]
  - DECREASED INTEREST [None]
  - DEPRESSION [None]
  - DYSPNOEA EXERTIONAL [None]
  - FALL [None]
  - FEELING ABNORMAL [None]
  - HALLUCINATION [None]
  - HYPERSOMNIA [None]
  - HYPOGLYCAEMIA [None]
  - MUSCLE TWITCHING [None]
  - MUSCULAR WEAKNESS [None]
  - SUICIDAL IDEATION [None]
  - SYNCOPE [None]
  - TREMOR [None]
  - WEIGHT INCREASED [None]
